FAERS Safety Report 9324967 (Version 1)
Quarter: 2013Q2

REPORT INFORMATION
  Report Type: Spontaneous
  Country: IT (occurrence: None)
  Receive Date: 20130530
  Receipt Date: 20130530
  Transmission Date: 20140414
  Serious: Yes (Other)
  Sender: FDA-Public Use
  Company Number: AUR-APL-2013-04324

PATIENT
  Age: 19 Year
  Sex: Female

DRUGS (2)
  1. DELORAZEPAM (DELORAZEPAM) [Suspect]
     Dosage: ORAL TOTAL
     Route: 048
     Dates: start: 20130426, end: 20130426
  2. SERTRALINE (SERTRALINE) (SERTRALINE) [Suspect]
     Dosage: TOTAL, ORAL
     Dates: start: 20130426, end: 20130426

REACTIONS (2)
  - Personality disorder [None]
  - Suicide attempt [None]
